FAERS Safety Report 7725153-9 (Version None)
Quarter: 2011Q3

REPORT INFORMATION
  Report Type: 
  Country: None (occurrence: None)
  Receive Date: 20110901
  Receipt Date: 20110826
  Transmission Date: 20111222
  Serious: Yes (Hospitalization)
  Sender: FDA-Public Use
  Company Number: JP-MERCK-0808USA04728

PATIENT
  Age: 70 Year
  Sex: Female

DRUGS (6)
  1. D-ALPHA [Concomitant]
     Indication: OSTEOPOROSIS
     Route: 048
  2. LIMAPROST ALFADEX [Concomitant]
     Route: 048
  3. FAMOSTAGINE [Concomitant]
     Route: 048
  4. CALCIUM ASPARTATE [Concomitant]
     Indication: OSTEOPOROSIS
     Route: 048
  5. FOSAMAX [Suspect]
     Indication: OSTEOPOROSIS
     Route: 048
     Dates: start: 20070101, end: 20071016
  6. LORCAM [Concomitant]
     Route: 048

REACTIONS (1)
  - OSTEOMYELITIS [None]
